FAERS Safety Report 14252709 (Version 8)
Quarter: 2018Q1

REPORT INFORMATION
  Report Type: Report from Study
  Country: None (occurrence: CH)
  Receive Date: 20171206
  Receipt Date: 20180326
  Transmission Date: 20180508
  Serious: Yes (Hospitalization)
  Sender: FDA-Public Use
  Company Number: CH-ABBVIE-17K-151-2180246-00

PATIENT
  Age: 74 Year
  Sex: Male

DRUGS (17)
  1. PK-MERZ [Concomitant]
     Active Substance: AMANTADINE
     Dates: start: 20171120, end: 20171123
  2. AMANTADIN [Concomitant]
     Active Substance: AMANTADINE
     Indication: PRODUCT USED FOR UNKNOWN INDICATION
     Route: 042
     Dates: start: 201708
  3. NOVASOURCE GI [Concomitant]
     Indication: PRODUCT USED FOR UNKNOWN INDICATION
     Dosage: 1000ML EVERY 24HOURS, START 12:30 OVER 14 HOURS
     Route: 050
  4. DUODOPA [Suspect]
     Active Substance: CARBIDOPA\LEVODOPA
     Dosage: MORNING DOSE 6ML?CONTINUOUS RATE 4ML/H?EXTRA DOSE 1.0ML??16H THERAPY
     Route: 050
     Dates: start: 2017
  5. EXELON [Concomitant]
     Active Substance: RIVASTIGMINE TARTRATE
     Indication: PRODUCT USED FOR UNKNOWN INDICATION
     Dates: start: 201608
  6. LEPONEX [Concomitant]
     Active Substance: CLOZAPINE
     Indication: PRODUCT USED FOR UNKNOWN INDICATION
     Dates: start: 201706
  7. DUODOPA [Suspect]
     Active Substance: CARBIDOPA\LEVODOPA
     Indication: PARKINSON^S DISEASE
     Dosage: MORNING DOSE 7ML?CONTINUOUS RATE 3.4ML/H?EXTRA DOSE 1.0ML
     Route: 050
     Dates: start: 20170515, end: 20170526
  8. DUODOPA [Suspect]
     Active Substance: CARBIDOPA\LEVODOPA
     Dosage: MORNING DOSE 7ML?CONTINUOUS RATE 4ML/H?EXTRA DOSE 1.0ML??16H THERAPY
     Route: 050
  9. MAGNESIOCARD [Concomitant]
     Active Substance: MAGNESIUM ASPARTATE HYDROCHLORIDE
     Indication: PRODUCT USED FOR UNKNOWN INDICATION
     Dosage: TO BE ADMINISTERED WITH 1000ML OF WATER, AT 10:00 AND 22:00
     Route: 050
  10. DUODOPA [Suspect]
     Active Substance: CARBIDOPA\LEVODOPA
     Dosage: MORNING DOSE 7ML?CONTINUOUS RATE 3.4ML/H?EXTRA DOSE 1.0ML
     Route: 050
     Dates: start: 2017, end: 20171120
  11. DUODOPA [Suspect]
     Active Substance: CARBIDOPA\LEVODOPA
     Dosage: MORNING DOSE 7ML?CONTINUOUS RATE 2.8ML/H?EXTRA DOSE 1.0ML
     Route: 050
     Dates: start: 20171123, end: 2017
  12. DUODOPA [Suspect]
     Active Substance: CARBIDOPA\LEVODOPA
     Dosage: MORNING DOSE 7ML?CONTINUOUS RATE 3.8ML/H?EXTRA DOSE 1.0ML
     Route: 050
  13. CEFEPIME [Concomitant]
     Active Substance: CEFEPIME HYDROCHLORIDE
     Indication: PRODUCT USED FOR UNKNOWN INDICATION
     Dosage: INFUSION OVER 30MIN, AT 0:00, 08:00, 16:00
     Route: 042
     Dates: start: 20171124
  14. ESOMEP [Concomitant]
     Active Substance: ESOMEPRAZOLE
     Indication: PRODUCT USED FOR UNKNOWN INDICATION
     Dosage: AT 10:00 AND 22:00
  15. PK-MERZ [Concomitant]
     Active Substance: AMANTADINE
     Indication: PRODUCT USED FOR UNKNOWN INDICATION
     Dates: start: 201607
  16. FRAGMIN [Concomitant]
     Active Substance: DALTEPARIN SODIUM
     Indication: PRODUCT USED FOR UNKNOWN INDICATION
     Dosage: AT NIGHT TIME
     Route: 058
  17. MADOPAR DR [Concomitant]
     Indication: PRODUCT USED FOR UNKNOWN INDICATION
     Dosage: AT NIGHT TIME
     Route: 050

REACTIONS (24)
  - Urinary tract infection [Unknown]
  - Neurological decompensation [Unknown]
  - Hypophagia [Recovering/Resolving]
  - Urinary tract infection pseudomonal [Not Recovered/Not Resolved]
  - Pyrexia [Unknown]
  - Aspiration [Unknown]
  - Speech disorder [Recovering/Resolving]
  - Pneumonia aspiration [Not Recovered/Not Resolved]
  - Dyspnoea [Unknown]
  - Device issue [Recovered/Resolved]
  - Escherichia urinary tract infection [Not Recovered/Not Resolved]
  - Asthenia [Unknown]
  - Blepharospasm [Unknown]
  - Therapeutic response shortened [Unknown]
  - Device related infection [Unknown]
  - Dysphagia [Unknown]
  - Hyperhidrosis [Unknown]
  - Akinesia [Unknown]
  - Freezing phenomenon [Unknown]
  - Escherichia infection [Unknown]
  - Diarrhoea [Unknown]
  - Device leakage [Recovered/Resolved]
  - Parkinson^s disease [Unknown]
  - General physical health deterioration [Unknown]

NARRATIVE: CASE EVENT DATE: 2017
